FAERS Safety Report 9448911 (Version 1)
Quarter: 2013Q3

REPORT INFORMATION
  Report Type: Spontaneous
  Country: US (occurrence: US)
  Receive Date: 20130808
  Receipt Date: 20130808
  Transmission Date: 20140515
  Serious: No
  Sender: FDA-Public Use
  Company Number: US-MYLANLABS-2013S1014166

PATIENT
  Sex: Male

DRUGS (3)
  1. MORPHINE SULFATE EXTENDED-RELEASE TABLETS [Suspect]
     Indication: PAIN
     Route: 048
     Dates: start: 2011
  2. LORTAB [Concomitant]
     Dosage: LORTAB-10
     Dates: start: 2005
  3. SOMA [Concomitant]
     Dates: start: 2005

REACTIONS (1)
  - Hallucination [Recovered/Resolved]
